FAERS Safety Report 13839367 (Version 5)
Quarter: 2020Q3

REPORT INFORMATION
  Report Type: Report from Study
  Country: JP (occurrence: JP)
  Receive Date: 20170807
  Receipt Date: 20200908
  Transmission Date: 20201102
  Serious: Yes (Disabling, Other)
  Sender: FDA-Public Use
  Company Number: JP-ASTELLAS-2017JP014893AA

PATIENT
  Age: 76 Year
  Sex: Male

DRUGS (16)
  1. CRESTOR [Suspect]
     Active Substance: ROSUVASTATIN CALCIUM
     Indication: HYPERLIPIDAEMIA
     Route: 048
     Dates: start: 20170503, end: 20170725
  2. ATORVASTATIN CALCIUM. [Concomitant]
     Active Substance: ATORVASTATIN CALCIUM
     Dosage: UNK UNK, UNKNOWN FREQ.
     Route: 048
     Dates: start: 20190305
  3. ATORVASTATIN CALCIUM. [Concomitant]
     Active Substance: ATORVASTATIN CALCIUM
     Indication: HYPERLIPIDAEMIA
     Dosage: UNK UNK, UNKNOWN FREQ.
     Route: 048
     Dates: start: 20171110, end: 20190226
  4. ENZALUTAMIDE [Suspect]
     Active Substance: ENZALUTAMIDE
     Dosage: 120 MG, ONCE DAILY, IN THE MORNING
     Route: 048
     Dates: start: 20170726, end: 20170727
  5. FEBURIC [Suspect]
     Active Substance: FEBUXOSTAT
     Indication: GOUT
     Route: 048
     Dates: start: 20170503, end: 20170725
  6. PIRENOXINE [Concomitant]
     Active Substance: PIRENOXINE
     Indication: CATARACT
     Dosage: UNK UNK, UNKNOWN FREQ.
     Route: 047
     Dates: start: 20170803
  7. TAMSULOSIN HYDROCHLORIDE. [Concomitant]
     Active Substance: TAMSULOSIN HYDROCHLORIDE
     Indication: PROSTATE CANCER
     Dosage: UNK UNK, UNKNOWN FREQ.
     Route: 048
     Dates: start: 20200303
  8. GONAX [Suspect]
     Active Substance: DEGARELIX
     Indication: HORMONE-REFRACTORY PROSTATE CANCER
     Route: 058
     Dates: start: 20170502, end: 20170725
  9. CLOBETASOL PROPIONATE. [Concomitant]
     Active Substance: CLOBETASOL PROPIONATE
     Indication: RASH
     Dosage: UNK UNK, UNKNOWN FREQ.
     Route: 048
     Dates: start: 20170726
  10. MIRABEGRON [Concomitant]
     Active Substance: MIRABEGRON
     Indication: DYSURIA
     Dosage: UNK UNK, UNKNOWN FREQ.
     Route: 048
     Dates: start: 20200814, end: 20200827
  11. ENZALUTAMIDE [Suspect]
     Active Substance: ENZALUTAMIDE
     Dosage: 80 MG, ONCE DAILY,  IN THE MORNING
     Route: 048
     Dates: start: 20170824
  12. ENZALUTAMIDE [Suspect]
     Active Substance: ENZALUTAMIDE
     Route: 048
     Dates: start: 20190305
  13. GONAX [Suspect]
     Active Substance: DEGARELIX
     Indication: HORMONE-REFRACTORY PROSTATE CANCER
     Route: 058
     Dates: start: 20170330, end: 20170330
  14. BETAHISTINE MESILATE [Concomitant]
     Active Substance: BETAHISTINE MESILATE
     Indication: DIZZINESS
     Dosage: UNK UNK, UNKNOWN FREQ.
     Route: 048
     Dates: start: 20200508
  15. ENZALUTAMIDE [Suspect]
     Active Substance: ENZALUTAMIDE
     Indication: HORMONE-DEPENDENT PROSTATE CANCER
     Dosage: 160 MG, ONCE DAILY, IN THE MORNING
     Route: 048
     Dates: start: 20170530, end: 20170725
  16. URIEF [Suspect]
     Active Substance: SILODOSIN
     Indication: DYSURIA
     Route: 048
     Dates: start: 20170314, end: 20170725

REACTIONS (2)
  - Hepatic function abnormal [Recovered/Resolved]
  - Rib fracture [Not Recovered/Not Resolved]

NARRATIVE: CASE EVENT DATE: 20170725
